FAERS Safety Report 8184782-1 (Version None)
Quarter: 2012Q1

REPORT INFORMATION
  Report Type: 
  Country: None (occurrence: None)
  Receive Date: 20120305
  Receipt Date: 20120305
  Transmission Date: 20120608
  Serious: Yes (Life-Threatening, Other)
  Sender: FDA-Public Use
  Company Number: None

PATIENT
  Sex: Female
  Weight: 81.193 kg

DRUGS (1)
  1. METRONIDAZOLE [Suspect]
     Indication: FISTULA
     Dosage: 3 PILLS
     Route: 048
     Dates: start: 20120131, end: 20120213

REACTIONS (6)
  - HEART RATE DECREASED [None]
  - BLOOD PRESSURE INCREASED [None]
  - FATIGUE [None]
  - DIZZINESS [None]
  - NAUSEA [None]
  - FEELING ABNORMAL [None]
